FAERS Safety Report 7519693-5 (Version None)
Quarter: 2011Q2

REPORT INFORMATION
  Report Type: 
  Country: None (occurrence: None)
  Receive Date: 20110524
  Receipt Date: 20110513
  Transmission Date: 20111010
  Serious: Yes (Other)
  Sender: FDA-Public Use
  Company Number: 1000021021

PATIENT
  Sex: Female

DRUGS (2)
  1. PRAZEPAM [Concomitant]
  2. ESCITALOPRAM [Suspect]
     Indication: PHOBIA
     Dosage: 15 MG (15 MG, 1 IN 1 D), ORAL; ORAL
     Route: 048

REACTIONS (1)
  - CYTOLYTIC HEPATITIS [None]
